FAERS Safety Report 9880982 (Version 1)
Quarter: 2014Q1

REPORT INFORMATION
  Report Type: Spontaneous
  Country: IT (occurrence: IT)
  Receive Date: 20140207
  Receipt Date: 20140207
  Transmission Date: 20141002
  Serious: Yes (Other)
  Sender: FDA-Public Use
  Company Number: IT-ABBVIE-14P-083-1199147-00

PATIENT
  Age: 4 Year
  Sex: Female
  Weight: 18 kg

DRUGS (4)
  1. KLACID [Suspect]
     Indication: BRONCHITIS
     Dosage: FORM STRENGHT: 250 MG/5 ML; DOSE: 15 MG/DAY IN TWO DOSES
     Route: 048
     Dates: start: 20140124, end: 20140124
  2. KLACID [Suspect]
     Route: 048
  3. BRONCOVALEAS [Concomitant]
     Indication: PRODUCT USED FOR UNKNOWN INDICATION
  4. BENTELAN [Concomitant]
     Indication: RELAPSING FEVER

REACTIONS (2)
  - Nightmare [Recovered/Resolved]
  - Hallucination [Recovered/Resolved]
